FAERS Safety Report 5426003-6 (Version None)
Quarter: 2007Q3

REPORT INFORMATION
  Report Type: 
  Country: None (occurrence: None)
  Receive Date: 20070823
  Receipt Date: 20070823
  Transmission Date: 20080115
  Serious: No
  Sender: FDA-Public Use
  Company Number: None

PATIENT
  Age: 82 Year
  Sex: Female

DRUGS (1)
  1. TESSALON [Suspect]
     Indication: COUGH
     Dosage: 1 PERLES 4 X DAILY ORALLY
     Route: 048
     Dates: start: 20070618, end: 20070622

REACTIONS (7)
  - CHOKING SENSATION [None]
  - DYSPHAGIA [None]
  - DYSPHONIA [None]
  - PHARMACEUTICAL PRODUCT COMPLAINT [None]
  - SPEECH DISORDER [None]
  - SWELLING [None]
  - VOCAL CORD DISORDER [None]
